FAERS Safety Report 8193150-8 (Version None)
Quarter: 2012Q1

REPORT INFORMATION
  Report Type: 
  Country: None (occurrence: None)
  Receive Date: 20120221
  Receipt Date: 20111101
  Transmission Date: 20120608
  Serious: No
  Sender: FDA-Public Use
  Company Number: 039656

PATIENT
  Sex: Female
  Weight: 71.2 kg

DRUGS (16)
  1. LACOSAMIDE [Suspect]
     Indication: CONVULSION
     Dosage: (150 MG BID ORAL) ; (100 MG BID ORAL)
     Route: 048
     Dates: start: 20111027
  2. LACOSAMIDE [Suspect]
     Indication: CONVULSION
     Dosage: (150 MG BID ORAL) ; (100 MG BID ORAL)
     Route: 048
     Dates: start: 20100428
  3. FERROUS SULFATE TAB [Concomitant]
  4. KEPPRA [Concomitant]
  5. KLONOPIN [Concomitant]
  6. POTASSIUM [Concomitant]
  7. ZOCOR [Concomitant]
  8. FOSAMAX [Concomitant]
  9. NEXIUM [Concomitant]
  10. LASIX [Concomitant]
  11. DITROPAN [Concomitant]
  12. GEMFIBROZIL [Concomitant]
  13. LYRICA [Concomitant]
  14. CAPTOPRIL [Concomitant]
  15. SYNTHROID [Concomitant]
  16. OSCAL /01746701/ [Concomitant]

REACTIONS (2)
  - CONVULSION [None]
  - WEIGHT INCREASED [None]
